FAERS Safety Report 10380324 (Version 3)
Quarter: 2014Q4

REPORT INFORMATION
  Report Type: Spontaneous
  Country: US (occurrence: US)
  Receive Date: 20140813
  Receipt Date: 20141013
  Transmission Date: 20150528
  Serious: No
  Sender: FDA-Public Use
  Company Number: US-009507513-1408USA001500

PATIENT
  Age: 21 Year
  Sex: Female
  Weight: 101.59 kg

DRUGS (1)
  1. NEXPLANON [Suspect]
     Active Substance: ETONOGESTREL
     Indication: CONTRACEPTION
     Dosage: UNK
     Route: 059
     Dates: start: 20140610

REACTIONS (7)
  - Medical device complication [Recovered/Resolved]
  - Device expulsion [Recovered/Resolved]
  - Limb discomfort [Unknown]
  - Pain in extremity [Recovered/Resolved]
  - Device dislocation [Recovered/Resolved]
  - Implant site pain [Recovered/Resolved]
  - Acne [Unknown]

NARRATIVE: CASE EVENT DATE: 2014
